FAERS Safety Report 17608759 (Version 2)
Quarter: 2020Q2

REPORT INFORMATION
  Report Type: Spontaneous
  Country: IT (occurrence: IT)
  Receive Date: 20200401
  Receipt Date: 20200407
  Transmission Date: 20200713
  Serious: Yes (Other)
  Sender: FDA-Public Use
  Company Number: IT-ADVANZ PHARMA-202002001099

PATIENT

DRUGS (3)
  1. IMIQUIMOD. [Concomitant]
     Active Substance: IMIQUIMOD
     Indication: PRODUCT USED FOR UNKNOWN INDICATION
     Dosage: UNK
  2. HYDROXYCHLOROQUINE SULFATE (AUTHORIZED GENERIC),PLAQUENIL [Suspect]
     Active Substance: HYDROXYCHLOROQUINE SULFATE
     Indication: RHEUMATOID ARTHRITIS
  3. HYDROXYCHLOROQUINE SULFATE (AUTHORIZED GENERIC),PLAQUENIL [Suspect]
     Active Substance: HYDROXYCHLOROQUINE SULFATE
     Indication: ARTHRITIS
     Dosage: UNK
     Route: 065
     Dates: start: 2019

REACTIONS (4)
  - Cataract [Unknown]
  - Red blood cell count decreased [Not Recovered/Not Resolved]
  - Visual impairment [Unknown]
  - Platelet count decreased [Not Recovered/Not Resolved]
